FAERS Safety Report 25905695 (Version 2)
Quarter: 2025Q4

REPORT INFORMATION
  Report Type: Spontaneous
  Country: TW (occurrence: TW)
  Receive Date: 20251010
  Receipt Date: 20251202
  Transmission Date: 20260118
  Serious: No
  Sender: ABBVIE
  Company Number: TW-ABBVIE-6489632

PATIENT

DRUGS (2)
  1. PRED FORTE [Suspect]
     Active Substance: PREDNISOLONE ACETATE
     Indication: Product used for unknown indication
     Dosage: DOSAGE FORM: DROPS?5 ML?LIQUID MEDICATION
     Route: 047
  2. PRED FORTE [Suspect]
     Active Substance: PREDNISOLONE ACETATE
     Dosage: DOSAGE FORM: DROPS?5 ML?LIQUID MEDICATION
     Route: 047

REACTIONS (1)
  - No adverse event [Unknown]
